FAERS Safety Report 5230325-1 (Version None)
Quarter: 2007Q1

REPORT INFORMATION
  Report Type: 
  Country: None (occurrence: None)
  Receive Date: 20070206
  Receipt Date: 20070202
  Transmission Date: 20070707
  Serious: Yes (Other)
  Sender: FDA-Public Use
  Company Number: CN-GLAXOSMITHKLINE-B0457031A

PATIENT
  Age: 27 Year
  Sex: Male

DRUGS (1)
  1. PANADOL [Suspect]
     Dosage: .5G PER DAY
     Route: 048
     Dates: start: 20070127, end: 20070128

REACTIONS (2)
  - CALCULUS URETERIC [None]
  - HAEMATURIA [None]
